FAERS Safety Report 9531707 (Version 2)
Quarter: 2013Q3

REPORT INFORMATION
  Report Type: Spontaneous
  Country: IN (occurrence: IN)
  Receive Date: 20130918
  Receipt Date: 20130925
  Transmission Date: 20140515
  Serious: Yes (Death, Hospitalization)
  Sender: FDA-Public Use
  Company Number: IN-SANOFI-AVENTIS-2013SA090808

PATIENT
  Age: 57 Year
  Sex: Female

DRUGS (1)
  1. LEFLUNOMIDE [Suspect]
     Indication: PRODUCT USED FOR UNKNOWN INDICATION
     Route: 065

REACTIONS (14)
  - Drug reaction with eosinophilia and systemic symptoms [Fatal]
  - Pyrexia [Fatal]
  - Rash [Fatal]
  - Rash maculo-papular [Fatal]
  - Generalised erythema [Fatal]
  - Mouth ulceration [Fatal]
  - Hepatosplenomegaly [Fatal]
  - Acute hepatic failure [Fatal]
  - Jaundice [Fatal]
  - Blood alkaline phosphatase increased [Fatal]
  - Blood bilirubin increased [Fatal]
  - Alanine aminotransferase increased [Fatal]
  - Aspartate aminotransferase increased [Fatal]
  - Hepatic encephalopathy [Fatal]
